FAERS Safety Report 24750628 (Version 2)
Quarter: 2024Q4

REPORT INFORMATION
  Report Type: Report from Study
  Country: US (occurrence: US)
  Receive Date: 20241218
  Receipt Date: 20241222
  Transmission Date: 20250115
  Serious: Yes (Hospitalization, Other)
  Sender: UCB
  Company Number: US-UCBSA-2024052864

PATIENT
  Sex: Male

DRUGS (4)
  1. FINTEPLA [Suspect]
     Active Substance: FENFLURAMINE
     Indication: Lennox-Gastaut syndrome
     Dosage: 0.6 MILLILITER, 2X/DAY (BID)
     Dates: start: 20241011
  2. FINTEPLA [Suspect]
     Active Substance: FENFLURAMINE
     Dosage: 1.2 MILLILITER, 2X/DAY (BID)
     Dates: start: 2024
  3. FINTEPLA [Suspect]
     Active Substance: FENFLURAMINE
     Dosage: 2.2 MILLILITER, 2X/DAY (BID)
     Dates: start: 2024
  4. FINTEPLA [Suspect]
     Active Substance: FENFLURAMINE
     Dosage: 2.8 MILLILITER, 2X/DAY (BID)
     Dates: start: 2024

REACTIONS (5)
  - Seizure [Unknown]
  - Hospitalisation [Not Recovered/Not Resolved]
  - Nausea [Recovered/Resolved]
  - Decreased appetite [Not Recovered/Not Resolved]
  - Off label use [Unknown]

NARRATIVE: CASE EVENT DATE: 20240101
